FAERS Safety Report 4836641-7 (Version None)
Quarter: 2005Q4

REPORT INFORMATION
  Report Type: 
  Country: None (occurrence: None)
  Receive Date: 20051121
  Receipt Date: 20051107
  Transmission Date: 20060501
  Serious: Yes (Hospitalization, Other)
  Sender: FDA-Public Use
  Company Number: 2005093882

PATIENT
  Age: 61 Year
  Sex: Female

DRUGS (6)
  1. XALATAN [Suspect]
     Indication: GLAUCOMA
     Dosage: ONE DROP IN EACH EYE (EVERY DAY), OPHTHALMIC
     Route: 047
     Dates: start: 20040101
  2. ALL OTHER THERAPEUTIC PRODUCTS (ALL OTHER THERAPEUTIC PRODUCTS) [Concomitant]
  3. LEVOTHYROXINE SODIUM [Concomitant]
  4. OMEPRAZOLE [Concomitant]
  5. AMLODIPINE [Concomitant]
  6. ENALAPRIL MALEATE [Concomitant]

REACTIONS (3)
  - CONDITION AGGRAVATED [None]
  - PAIN [None]
  - VARICOSE VEIN [None]
